FAERS Safety Report 22245545 (Version 1)
Quarter: 2023Q2

REPORT INFORMATION
  Report Type: Spontaneous
  Country: US (occurrence: None)
  Receive Date: 20230423
  Receipt Date: 20230423
  Transmission Date: 20230721
  Serious: No
  Sender: FDA-Public Use
  Company Number: None

PATIENT
  Age: 58 Year
  Sex: Male
  Weight: 67.05 kg

DRUGS (8)
  1. ZENPEP [Suspect]
     Active Substance: PANCRELIPASE AMYLASE\PANCRELIPASE LIPASE\PANCRELIPASE PROTEASE
     Indication: Endocrine pancreatic disorder
     Dosage: OTHER STRENGTH : 15,000;?OTHER QUANTITY : 100 CAPSULE(S);?OTHER FREQUENCY : 2 WITH MEALS;?
     Route: 048
  2. CLONAZEPAM [Concomitant]
     Active Substance: CLONAZEPAM
  3. ONDANSETRON [Concomitant]
     Active Substance: ONDANSETRON
  4. PANTOPRAZOLE [Concomitant]
     Active Substance: PANTOPRAZOLE
  5. DESCOVY [Concomitant]
     Active Substance: EMTRICITABINE\TENOFOVIR ALAFENAMIDE FUMARATE
  6. DESVENLAFAXINE [Concomitant]
     Active Substance: DESVENLAFAXINE
  7. Over 50 multi-vitamin [Concomitant]
  8. Complete Formulation Multivitamin [Concomitant]

REACTIONS (7)
  - Constipation [None]
  - Wrong technique in product usage process [None]
  - Abdominal distension [None]
  - Muscle spasms [None]
  - Flatulence [None]
  - Diarrhoea [None]
  - Incorrect dosage administered [None]

NARRATIVE: CASE EVENT DATE: 20230416
